FAERS Safety Report 7112684-8 (Version None)
Quarter: 2010Q4

REPORT INFORMATION
  Report Type: 
  Country: None (occurrence: None)
  Receive Date: 20101119
  Receipt Date: 20101108
  Transmission Date: 20110411
  Serious: Yes (Other)
  Sender: FDA-Public Use
  Company Number: PHHY2010NL75617

PATIENT
  Sex: Male

DRUGS (1)
  1. ZOMETA [Suspect]
     Indication: PROSTATE CANCER METASTATIC
     Dosage: 4 MG/5 ML, CONCENTRATE FOR SOLUTION FOR IV INFUSION (ADMINISTERED WITH NACL 0.9% 100ML BAG, RYTHMIC
     Dates: end: 20101018

REACTIONS (2)
  - PAIN [None]
  - SUICIDAL IDEATION [None]
